FAERS Safety Report 7637123-X (Version None)
Quarter: 2011Q3

REPORT INFORMATION
  Report Type: 
  Country: None (occurrence: None)
  Receive Date: 20110722
  Receipt Date: 20110722
  Transmission Date: 20111222
  Serious: Yes (Life-Threatening)
  Sender: FDA-Public Use
  Company Number: None

PATIENT
  Sex: Male
  Weight: 90.7194 kg

DRUGS (2)
  1. TOVIAZ [Suspect]
     Indication: URINARY INCONTINENCE
     Dosage: 8 MG 1X DAILY MOUTH
     Route: 048
     Dates: start: 20110702, end: 20110704
  2. TOVIAZ [Suspect]
     Indication: POLLAKIURIA
     Dosage: 8 MG 1X DAILY MOUTH
     Route: 048
     Dates: start: 20110702, end: 20110704

REACTIONS (5)
  - PHARYNGEAL OEDEMA [None]
  - PAIN [None]
  - MUSCULAR WEAKNESS [None]
  - DYSPHAGIA [None]
  - MOVEMENT DISORDER [None]
